FAERS Safety Report 8864341 (Version 1)
Quarter: 2012Q4

REPORT INFORMATION
  Report Type: 
  Country: US (occurrence: US)
  Receive Date: 20121024
  Receipt Date: 20121024
  Transmission Date: 20130627
  Serious: No
  Sender: FDA-Public Use
  Company Number: US-AMGEN-USASP2011066926

PATIENT
  Age: 48 Year
  Sex: Female

DRUGS (5)
  1. ENBREL [Suspect]
     Indication: PRODUCT USED FOR UNKNOWN INDICATION
     Dosage: 50 mg, qwk
  2. PAXIL [Concomitant]
     Dosage: 10 mg, UNK
  3. LEUCOVORIN /00566701/ [Concomitant]
     Dosage: 5 mg, UNK
  4. METHOTREXATE [Concomitant]
     Dosage: 2.5 mg, UNK
  5. NAPROXEN [Concomitant]
     Dosage: 375 mg, UNK

REACTIONS (2)
  - Throat irritation [Unknown]
  - Nasopharyngitis [Unknown]
